FAERS Safety Report 21000294 (Version 1)
Quarter: 2022Q2

REPORT INFORMATION
  Report Type: Spontaneous
  Country: US (occurrence: None)
  Receive Date: 20220623
  Receipt Date: 20220623
  Transmission Date: 20220720
  Serious: No
  Sender: FDA-Public Use
  Company Number: None

PATIENT
  Sex: Female

DRUGS (1)
  1. LENALIDOMIDE [Suspect]
     Active Substance: LENALIDOMIDE
     Indication: Plasma cell myeloma in remission
     Dosage: FREQUENCY : DAILY;?
     Route: 048
     Dates: start: 20191003

REACTIONS (7)
  - Dizziness [None]
  - Dyspnoea [None]
  - Tachycardia [None]
  - Hyperhidrosis [None]
  - Neck mass [None]
  - Product substitution issue [None]
  - Fatigue [None]
